FAERS Safety Report 4543294-4 (Version None)
Quarter: 2004Q4

REPORT INFORMATION
  Report Type: 
  Country: None (occurrence: None)
  Receive Date: 20041229
  Receipt Date: 20041220
  Transmission Date: 20050328
  Serious: Yes (Hospitalization)
  Sender: FDA-Public Use
  Company Number: 2004UW25143

PATIENT
  Sex: Female
  Weight: 63 kg

DRUGS (4)
  1. XYLOCAINE W/ EPINEPHRINE [Suspect]
     Indication: LOCAL ANAESTHESIA
     Dosage: 55 ML DAILY PNEU
     Dates: start: 20040426, end: 20040426
  2. PREDNISONE [Concomitant]
  3. OMEPRAZOLE [Concomitant]
  4. COLCHINA ^LIRCA^ [Concomitant]

REACTIONS (7)
  - DIAPHRAGMATIC PARALYSIS [None]
  - DYSPNOEA [None]
  - NAUSEA [None]
  - NECK PAIN [None]
  - OVERDOSE [None]
  - PAIN IN EXTREMITY [None]
  - PULMONARY HYPERTENSION [None]
